FAERS Safety Report 13005636 (Version 1)
Quarter: 2016Q4

REPORT INFORMATION
  Report Type: Spontaneous
  Country: US (occurrence: US)
  Receive Date: 20161207
  Receipt Date: 20161207
  Transmission Date: 20170207
  Serious: No
  Sender: FDA-Public Use
  Company Number: US-JNJFOC-20161108438

PATIENT

DRUGS (2)
  1. FENTANYL. [Suspect]
     Active Substance: FENTANYL
     Indication: PRODUCT USED FOR UNKNOWN INDICATION
     Dosage: NEARLY 5 MG (25 MCG/HR);
     Route: 062
  2. DURAGESIC [Suspect]
     Active Substance: FENTANYL
     Indication: PRODUCT USED FOR UNKNOWN INDICATION
     Dosage: SINCE 7-8 YEARS
     Route: 062

REACTIONS (6)
  - Burning sensation [Unknown]
  - Adverse event [Unknown]
  - Drug effect decreased [Unknown]
  - Drug dose omission [Unknown]
  - Hypersensitivity [Unknown]
  - Product packaging quantity issue [Unknown]
